FAERS Safety Report 25741852 (Version 2)
Quarter: 2025Q3

REPORT INFORMATION
  Report Type: Report from Study
  Country: JP (occurrence: JP)
  Receive Date: 20250829
  Receipt Date: 20250909
  Transmission Date: 20251020
  Serious: Yes (Other)
  Sender: TAIHO ONCOLOGY INC
  Company Number: JP-TAIHOP-2025-007148

PATIENT
  Age: 74 Year
  Sex: Female

DRUGS (2)
  1. LYTGOBI [Suspect]
     Active Substance: FUTIBATINIB
     Indication: Bile duct cancer
     Route: 048
     Dates: start: 20250606
  2. LANTHANUM CARBONATE [Concomitant]
     Active Substance: LANTHANUM CARBONATE
     Indication: Product used for unknown indication

REACTIONS (4)
  - Epilepsy [Not Recovered/Not Resolved]
  - Cognitive disorder [Unknown]
  - Hyperphosphataemia [Unknown]
  - Prescribed underdose [Unknown]
